FAERS Safety Report 8575937-2 (Version None)
Quarter: 2012Q3

REPORT INFORMATION
  Report Type: 
  Country: None (occurrence: None)
  Receive Date: 20120807
  Receipt Date: 20120801
  Transmission Date: 20120928
  Serious: No
  Sender: FDA-Public Use
  Company Number: US-PFIZER INC-2012187424

PATIENT
  Age: 59 Year

DRUGS (40)
  1. SULFANILAMIDE [Suspect]
     Dosage: UNK
  2. PSEUDOEPHEDRINE HCL [Suspect]
     Dosage: UNK
  3. TRIPROLIDINE HCL [Suspect]
     Dosage: UNK
  4. CROMOLYN SODIUM [Suspect]
     Dosage: UNK
  5. FLUTICASONE PROPIONATE [Suspect]
     Dosage: UNK
  6. CEFADROXIL [Suspect]
     Dosage: UNK
  7. CEFUROXIME AXETIL [Suspect]
     Dosage: UNK
  8. TETRACYCLINE HYDROCHLORIDE [Suspect]
     Dosage: UNK
  9. PHENYLTOLOXAMINE [Suspect]
     Dosage: UNK
  10. LEFLUNOMIDE [Suspect]
     Dosage: UNK
  11. CODEINE PHOSPHATE [Suspect]
     Dosage: UNK
  12. CODEINE SULFATE [Suspect]
     Dosage: UNK
  13. CECLOR [Suspect]
     Dosage: UNK
  14. AMLODIPINE BESYLATE [Suspect]
     Dosage: UNK
  15. SEPTRA [Suspect]
     Dosage: UNK
  16. LODINE [Suspect]
     Dosage: UNK
  17. THEOPHYLLINE [Suspect]
     Dosage: UNK
  18. FOSINOPRIL SODIUM [Suspect]
     Dosage: UNK
  19. PHENYLEPHRINE HYDROCHLORIDE [Suspect]
     Dosage: UNK
  20. MORPHINE [Suspect]
     Dosage: UNK
  21. METHSCOPOLAMINE BROMIDE [Suspect]
     Dosage: UNK
  22. CHLORPHENIRAMINE MALEATE [Suspect]
     Dosage: UNK
  23. DEMEROL [Suspect]
     Dosage: UNK
  24. NAPROSYN [Suspect]
     Dosage: UNK
  25. PSEUDOEPHEDRINE SULFATE [Suspect]
     Dosage: UNK
  26. METHOTREXATE [Suspect]
     Dosage: UNK
  27. ASPIRIN [Suspect]
     Dosage: UNK
  28. OXYMETAZOLINE HCL [Suspect]
     Dosage: UNK
  29. CELEBREX [Suspect]
     Dosage: UNK
  30. CHLORPHENIRAMINE MALEATE [Suspect]
     Dosage: UNK
  31. DEXCHLORPHENIRAMINE MALEATE [Suspect]
     Dosage: UNK
  32. PHENYLPROPANOLAMINE HCL [Suspect]
     Dosage: UNK
  33. GEMIFLOXACIN MESYLATE [Suspect]
     Dosage: UNK
  34. ALBUTEROL SULFATE [Suspect]
     Dosage: UNK
  35. ASTEMIZOLE [Suspect]
     Dosage: UNK
  36. MECLIZINE [Suspect]
     Dosage: UNK
  37. MOXIFLOXACIN HYDROCHLORIDE [Suspect]
     Dosage: UNK
  38. CAFFEINE CITRATE [Suspect]
     Dosage: UNK
  39. BACTRIM [Suspect]
     Dosage: UNK
  40. ACETAMINOPHEN [Suspect]
     Dosage: UNK

REACTIONS (1)
  - DRUG HYPERSENSITIVITY [None]
